FAERS Safety Report 6882331-9 (Version None)
Quarter: 2010Q3

REPORT INFORMATION
  Report Type: 
  Country: None (occurrence: None)
  Receive Date: 20100729
  Receipt Date: 20100112
  Transmission Date: 20110219
  Serious: No
  Sender: FDA-Public Use
  Company Number: US-MYLANLABS-2010S1000666

PATIENT
  Age: 71 Year
  Sex: Male
  Weight: 86.18 kg

DRUGS (2)
  1. LEVOTHYROXINE SODIUM [Suspect]
     Indication: BLOOD THYROID STIMULATING HORMONE DECREASED
     Route: 048
     Dates: start: 20090601
  2. HYZAAR [Concomitant]
     Indication: BLOOD PRESSURE INCREASED

REACTIONS (3)
  - COUGH [None]
  - INCREASED UPPER AIRWAY SECRETION [None]
  - WHEEZING [None]
